FAERS Safety Report 4813330-6 (Version None)
Quarter: 2005Q4

REPORT INFORMATION
  Report Type: 
  Country: None (occurrence: None)
  Receive Date: 20051028
  Receipt Date: 20050503
  Transmission Date: 20060501
  Serious: No
  Sender: FDA-Public Use
  Company Number: US-GLAXOSMITHKLINE-A0557068A

PATIENT
  Age: 45 Year
  Sex: Female

DRUGS (6)
  1. ADVAIR DISKUS 100/50 [Suspect]
     Indication: DRUG USE FOR UNKNOWN INDICATION
     Route: 055
  2. ALLEGRA [Concomitant]
  3. RELAFEN [Concomitant]
  4. GLUCOSAMINE [Concomitant]
  5. DIURETIC [Concomitant]
  6. PROTONIX [Concomitant]

REACTIONS (2)
  - CHOKING [None]
  - PHARMACEUTICAL PRODUCT COMPLAINT [None]
